FAERS Safety Report 17133483 (Version 1)
Quarter: 2019Q4

REPORT INFORMATION
  Report Type: Spontaneous
  Country: US (occurrence: US)
  Receive Date: 20191209
  Receipt Date: 20191209
  Transmission Date: 20200122
  Serious: Yes (Death, Life-Threatening, Hospitalization)
  Sender: FDA-Public Use
  Company Number: None

PATIENT
  Age: 67 Year
  Sex: Male

DRUGS (1)
  1. PEMBROLIZUMAB. [Suspect]
     Active Substance: PEMBROLIZUMAB
     Indication: OESOPHAGEAL ADENOCARCINOMA
     Dosage: ?          OTHER FREQUENCY:EVERY 21 DAYS;?
     Route: 041
     Dates: start: 20190717, end: 20190918

REACTIONS (10)
  - Condition aggravated [None]
  - Hypothyroidism [None]
  - Hypothermia [None]
  - Adrenal insufficiency [None]
  - Confusional state [None]
  - Encephalitis [None]
  - Lymphadenopathy [None]
  - Hypernatraemia [None]
  - International normalised ratio increased [None]
  - Hypotension [None]

NARRATIVE: CASE EVENT DATE: 20191014
